FAERS Safety Report 10025551 (Version 1)
Quarter: 2014Q1

REPORT INFORMATION
  Report Type: Spontaneous
  Country: GB (occurrence: GB)
  Receive Date: 20140320
  Receipt Date: 20140320
  Transmission Date: 20141002
  Serious: Yes (Life-Threatening, Hospitalization, Other)
  Sender: FDA-Public Use
  Company Number: GB-PFIZER INC-2014077256

PATIENT
  Age: 56 Year
  Sex: Male
  Weight: 80 kg

DRUGS (9)
  1. FLUCONAZOLE [Suspect]
     Indication: ORAL CANDIDIASIS
     Dosage: 50 MG, 1X/DAY
     Route: 048
     Dates: start: 20140221, end: 20140224
  2. DAKTARIN [Interacting]
     Indication: ORAL CANDIDIASIS
     Dosage: 2.5 ML, 4X/DAY
     Route: 048
     Dates: start: 20140207, end: 20140214
  3. WARFARIN [Interacting]
     Indication: ATRIAL FIBRILLATION
  4. OMEPRAZOLE [Concomitant]
     Dosage: UNK
  5. RAMIPRIL [Concomitant]
     Dosage: UNK
  6. SALBUTAMOL [Concomitant]
     Dosage: UNK
  7. SPIROLACTONE [Concomitant]
     Dosage: UNK
  8. SYMBICORT [Concomitant]
     Dosage: UNK
  9. BISOPROLOL [Concomitant]
     Dosage: UNK

REACTIONS (14)
  - Medication error [Unknown]
  - Drug interaction [Unknown]
  - Drug effect increased [Recovering/Resolving]
  - Back pain [Recovering/Resolving]
  - Pain in extremity [Recovering/Resolving]
  - Epistaxis [Recovering/Resolving]
  - Faeces discoloured [Recovering/Resolving]
  - Haematemesis [Recovering/Resolving]
  - Aphagia [Recovering/Resolving]
  - International normalised ratio increased [Recovering/Resolving]
  - Dehydration [Recovering/Resolving]
  - Renal failure acute [Recovering/Resolving]
  - Gastritis [Recovering/Resolving]
  - Retroperitoneal haemorrhage [Recovering/Resolving]
